FAERS Safety Report 6684257-2 (Version None)
Quarter: 2010Q2

REPORT INFORMATION
  Report Type: 
  Country: None (occurrence: None)
  Receive Date: 20100416
  Receipt Date: 20100406
  Transmission Date: 20101027
  Serious: Yes (Hospitalization)
  Sender: FDA-Public Use
  Company Number: US-AMGEN-US169442

PATIENT
  Age: 47 Year
  Sex: Female
  Weight: 66.3 kg

DRUGS (14)
  1. ETANERCEPT [Suspect]
     Indication: RHEUMATOID ARTHRITIS
     Dates: end: 20060127
  2. METHOTREXATE [Suspect]
  3. HYDROXYCHLOROQUINE SULFATE [Suspect]
  4. SULFASALAZINE [Suspect]
  5. LEVOTHYROXINE [Concomitant]
  6. VALIUM [Concomitant]
  7. XANAX [Concomitant]
  8. NEURONTIN [Concomitant]
  9. KLONOPIN [Concomitant]
  10. LORTAB [Concomitant]
  11. AZATHIOPRINE [Concomitant]
  12. ELAVIL [Concomitant]
  13. KETOROLAC TROMETHAMINE [Concomitant]
  14. METHADONE HCL [Concomitant]

REACTIONS (2)
  - DEMYELINATION [None]
  - NEUROPATHY PERIPHERAL [None]
